FAERS Safety Report 20042157 (Version 1)
Quarter: 2021Q4

REPORT INFORMATION
  Report Type: Spontaneous
  Country: US (occurrence: US)
  Receive Date: 20211108
  Receipt Date: 20211108
  Transmission Date: 20220303
  Serious: No
  Sender: FDA-Public Use
  Company Number: US-ELI_LILLY_AND_COMPANY-US202110005654

PATIENT
  Age: 61 Year
  Sex: Male

DRUGS (1)
  1. HUMALOG [Suspect]
     Active Substance: INSULIN LISPRO
     Indication: Product used for unknown indication
     Dosage: UNK UNK, UNKNOWN
     Route: 065

REACTIONS (7)
  - Pneumonia [Unknown]
  - Alopecia [Unknown]
  - COVID-19 [Unknown]
  - Balance disorder [Unknown]
  - Anosmia [Unknown]
  - Migraine [Unknown]
  - Ageusia [Unknown]

NARRATIVE: CASE EVENT DATE: 20201201
